FAERS Safety Report 13193115 (Version 2)
Quarter: 2017Q1

REPORT INFORMATION
  Report Type: Spontaneous
  Country: US (occurrence: US)
  Receive Date: 20170207
  Receipt Date: 20170207
  Transmission Date: 20170428
  Serious: No
  Sender: FDA-Public Use
  Company Number: US-BAYER-2017-022337

PATIENT
  Age: 74 Year
  Sex: Female

DRUGS (6)
  1. PREDNISONE. [Concomitant]
     Active Substance: PREDNISONE
  2. CLARITIN [Suspect]
     Active Substance: LORATADINE
     Indication: HYPERSENSITIVITY
     Dosage: 1 UNK, UNK
     Route: 047
  3. CLARITIN [Suspect]
     Active Substance: LORATADINE
     Indication: NASOPHARYNGITIS
  4. LACTULOSE. [Concomitant]
     Active Substance: LACTULOSE
  5. FOLIC ACID. [Concomitant]
     Active Substance: FOLIC ACID
  6. OXYCODONE [Concomitant]
     Active Substance: OXYCODONE

REACTIONS (2)
  - Accidental exposure to product [None]
  - Eye irritation [Not Recovered/Not Resolved]

NARRATIVE: CASE EVENT DATE: 20170203
